FAERS Safety Report 24578372 (Version 1)
Quarter: 2024Q4

REPORT INFORMATION
  Report Type: Spontaneous
  Country: BE (occurrence: BE)
  Receive Date: 20241105
  Receipt Date: 20241105
  Transmission Date: 20250114
  Serious: Yes (Hospitalization, Disabling)
  Sender: NOVO NORDISK
  Company Number: BE-NOVOPROD-1307898

PATIENT
  Sex: Male

DRUGS (1)
  1. ACTRAPID [Suspect]
     Active Substance: INSULIN HUMAN
     Indication: Product used for unknown indication
     Dosage: UNKNOWN

REACTIONS (2)
  - Coma [Unknown]
  - Leg amputation [Unknown]
